FAERS Safety Report 5334435-X (Version None)
Quarter: 2007Q2

REPORT INFORMATION
  Report Type: 
  Country: None (occurrence: None)
  Receive Date: 20070525
  Receipt Date: 20061020
  Transmission Date: 20071010
  Serious: No
  Sender: FDA-Public Use
  Company Number: A0621208A

PATIENT
  Age: 45 Year
  Sex: Female
  Weight: 29.5 kg

DRUGS (1)
  1. FLOLAN [Suspect]
     Route: 042
     Dates: start: 20051017

REACTIONS (4)
  - ERYTHEMA [None]
  - EXTRAVASATION [None]
  - SKIN EXFOLIATION [None]
  - SWELLING [None]
